FAERS Safety Report 4757215-2 (Version None)
Quarter: 2005Q3

REPORT INFORMATION
  Report Type: 
  Country: None (occurrence: None)
  Receive Date: 20050829
  Receipt Date: 20050815
  Transmission Date: 20060218
  Serious: Yes (Hospitalization)
  Sender: FDA-Public Use
  Company Number: 2005BI013686

PATIENT
  Age: 51 Year
  Sex: Male
  Weight: 128.8216 kg

DRUGS (11)
  1. AVONEX [Suspect]
     Indication: MULTIPLE SCLEROSIS
     Dosage: UNKNOWN; UNK; IM
     Route: 030
     Dates: start: 20020223
  2. VERAPAMIL [Concomitant]
  3. LANTUS [Concomitant]
  4. METFORMIN [Concomitant]
  5. WELLBUTRIN [Concomitant]
  6. LISINOPRIL [Concomitant]
  7. DIAZEPAM [Concomitant]
  8. ACTOS [Concomitant]
  9. GLIPIZIDE [Concomitant]
  10. ANTIVERT [Concomitant]
  11. STEROIDS [Concomitant]

REACTIONS (5)
  - BLOOD GLUCOSE INCREASED [None]
  - COORDINATION ABNORMAL [None]
  - FATIGUE [None]
  - MULTIPLE SCLEROSIS RELAPSE [None]
  - OPHTHALMOPLEGIA [None]
